FAERS Safety Report 5708513-7 (Version None)
Quarter: 2008Q2

REPORT INFORMATION
  Report Type: 
  Country: None (occurrence: None)
  Receive Date: 20080417
  Receipt Date: 20080116
  Transmission Date: 20081010
  Serious: No
  Sender: FDA-Public Use
  Company Number: US-BRISTOL-MYERS SQUIBB COMPANY-14043400

PATIENT
  Sex: Female

DRUGS (1)
  1. PARAPLATIN [Suspect]

REACTIONS (3)
  - DYSPNOEA [None]
  - INJECTION SITE ERYTHEMA [None]
  - PRURITUS [None]
